FAERS Safety Report 5564714-2 (Version None)
Quarter: 2007Q4

REPORT INFORMATION
  Report Type: 
  Country: None (occurrence: None)
  Receive Date: 20071218
  Receipt Date: 20071206
  Transmission Date: 20080405
  Serious: Yes (Hospitalization)
  Sender: FDA-Public Use
  Company Number: US-AMGEN-QUU253135

PATIENT
  Sex: Male
  Weight: 69.9 kg

DRUGS (7)
  1. ENBREL [Suspect]
     Indication: RHEUMATOID ARTHRITIS
     Route: 058
     Dates: start: 20070601
  2. MORPHINE [Concomitant]
  3. OXYCODONE HCL [Concomitant]
  4. CALCIUM WITH VITAMIN D [Concomitant]
  5. OMEPRAZOLE [Concomitant]
  6. ALBUTEROL [Concomitant]
  7. PREDNISONE [Concomitant]

REACTIONS (3)
  - INTERVERTEBRAL DISC PROTRUSION [None]
  - LIMB OPERATION [None]
  - WEIGHT DECREASED [None]
